FAERS Safety Report 24444254 (Version 2)
Quarter: 2024Q4

REPORT INFORMATION
  Report Type: Report from Study
  Country: US (occurrence: US)
  Receive Date: 20241016
  Receipt Date: 20241017
  Transmission Date: 20250115
  Serious: No
  Sender: ROCHE
  Company Number: US-ROCHE-2802901

PATIENT
  Age: 32 Year
  Sex: Female

DRUGS (4)
  1. RITUXAN [Suspect]
     Active Substance: RITUXIMAB
     Indication: Encephalopathy
     Dosage: ON DAY(S) 1 AND DAY(S) 15 EVERY 6 MONTH (S)? FREQUENCY TEXT:ON DAY(S) 1 AND DAY(S) 15 EVERY 6 MONTHS
     Route: 041
  2. RITUXAN [Suspect]
     Active Substance: RITUXIMAB
     Indication: Encephalitis
  3. RITUXAN [Suspect]
     Active Substance: RITUXIMAB
     Indication: Encephalomyelitis
  4. RITUXAN [Suspect]
     Active Substance: RITUXIMAB
     Indication: Confusional state

REACTIONS (3)
  - Off label use [Unknown]
  - No adverse event [Unknown]
  - Product prescribing error [Unknown]
